FAERS Safety Report 23298723 (Version 1)
Quarter: 2023Q4

REPORT INFORMATION
  Report Type: Spontaneous
  Country: CN (occurrence: CN)
  Receive Date: 20231214
  Receipt Date: 20231214
  Transmission Date: 20240110
  Serious: Yes (Other)
  Sender: FDA-Public Use
  Company Number: None

PATIENT
  Age: 57 Year
  Sex: Female
  Weight: 57 kg

DRUGS (5)
  1. CYCLOPHOSPHAMIDE [Suspect]
     Active Substance: CYCLOPHOSPHAMIDE
     Indication: Breast cancer female
     Dosage: (DOSAGE FORM: INJECTION) 1 G, ONE TIME IN ONE DAY, D1 DILUTED WITH 0.9% SODIUM CHLORIDE INJECTION 50
     Route: 041
     Dates: start: 20231031, end: 20231031
  2. SODIUM CHLORIDE [Suspect]
     Active Substance: SODIUM CHLORIDE
     Indication: Medication dilution
     Dosage: (INJECTION) 100 ML, D1 AND 50ML STERILE WATER FOR INJECTION USED TO DILUTE 115 MG EPIRUBICIN HYDROHL
     Route: 041
     Dates: start: 20231031, end: 20231031
  3. SODIUM CHLORIDE [Suspect]
     Active Substance: SODIUM CHLORIDE
     Dosage: (INJECTION) (SOLVENT) 50 ML, D1, USED TO DILUTE CYCLOPHOSPHAMIDE FOR INJECTION 1 G
     Route: 041
     Dates: start: 20231031, end: 20231031
  4. WATER FOR INJECTION [Suspect]
     Active Substance: WATER
     Indication: Medication dilution
     Dosage: (STERILE) 50 ML, D1 AND 0.9% SODIUM CHLORIDE INJECTION 100 ML USED TO DILUTE 115 MG EPIRUBICIN HYDRO
     Route: 041
     Dates: start: 20231031, end: 20231031
  5. EPIRUBICIN HYDROCHLORIDE [Suspect]
     Active Substance: EPIRUBICIN HYDROCHLORIDE
     Indication: Breast cancer female
     Dosage: 115 MG ONE TIME IN ONE DAY, D1 DILUTED WITH STERILE WATER FOR INJECTION 50 ML AND 0.9% SODIUM CHLORI
     Route: 041
     Dates: start: 20231031, end: 20231031

REACTIONS (1)
  - Myelosuppression [Unknown]

NARRATIVE: CASE EVENT DATE: 20231127
